FAERS Safety Report 4939111-0 (Version None)
Quarter: 2006Q1

REPORT INFORMATION
  Report Type: 
  Country: None (occurrence: None)
  Receive Date: 20060306
  Receipt Date: 20060223
  Transmission Date: 20060701
  Serious: Yes (Other)
  Sender: FDA-Public Use
  Company Number: 140741USA

PATIENT
  Age: 52 Year
  Sex: Male

DRUGS (5)
  1. COPAXONE [Suspect]
     Indication: MULTIPLE SCLEROSIS
     Dosage: 20 MILLIGRAM QD SUBCUTANEOUS
     Route: 058
     Dates: start: 19980427, end: 20041203
  2. COPAXONE [Suspect]
     Indication: MULTIPLE SCLEROSIS
  3. AMANTADINE HCL [Concomitant]
  4. IBUPROFEN [Concomitant]
  5. VITAMIN B-12 [Concomitant]

REACTIONS (11)
  - DRUG ERUPTION [None]
  - EMBOLISM [None]
  - INFUSION SITE INFECTION [None]
  - INJECTION SITE HAEMORRHAGE [None]
  - INJECTION SITE NECROSIS [None]
  - INJECTION SITE REACTION [None]
  - PAIN [None]
  - PANNICULITIS [None]
  - POST PROCEDURAL COMPLICATION [None]
  - SCAR [None]
  - VASCULITIS [None]
